FAERS Safety Report 7082535-9 (Version None)
Quarter: 2010Q4

REPORT INFORMATION
  Report Type: 
  Country: None (occurrence: None)
  Receive Date: 20101026
  Receipt Date: 20101017
  Transmission Date: 20110411
  Serious: Yes (Hospitalization)
  Sender: FDA-Public Use
  Company Number: 2010EN000230

PATIENT
  Age: 31 Year
  Sex: Male

DRUGS (9)
  1. ONCASPAR [Suspect]
     Indication: ACUTE LYMPHOCYTIC LEUKAEMIA
     Dosage: 2500 IU/M*2;X1;IV
     Route: 042
     Dates: start: 20100518, end: 20100518
  2. CYTARABINE [Suspect]
     Indication: ACUTE LYMPHOCYTIC LEUKAEMIA
     Dosage: 50 MG;X1;INTH
     Route: 037
     Dates: start: 20100512, end: 20100512
  3. ONCASPAR [Suspect]
     Indication: ACUTE LYMPHOCYTIC LEUKAEMIA
     Dosage: 2500 IU/M*2;X1;IV
     Route: 042
     Dates: start: 20100518, end: 20100518
  4. CYTARABINE [Suspect]
     Indication: ACUTE LYMPHOCYTIC LEUKAEMIA
     Dosage: 50 MG;X1;INTH
     Route: 037
     Dates: start: 20100512, end: 20100512
  5. METHOTREXATE [Suspect]
     Indication: ACUTE LYMPHOCYTIC LEUKAEMIA
     Dosage: 79.2 MG;X1;IV
     Route: 042
     Dates: start: 20100517, end: 20100517
  6. VINCRISTINE [Suspect]
     Indication: ACUTE LYMPHOCYTIC LEUKAEMIA
     Dosage: 2 MG;QW;IV
     Route: 042
     Dates: start: 20100515, end: 20100522
  7. METHYLPREDNISOLONE [Suspect]
     Indication: ACUTE LYMPHOCYTIC LEUKAEMIA
     Dosage: 20 MG;Q8H;IV
     Route: 042
     Dates: start: 20100512, end: 20100514
  8. DOXORUBICIN HCL [Suspect]
     Indication: ACUTE LYMPHOCYTIC LEUKAEMIA
     Dosage: 59 MG;QD;IV
     Route: 042
     Dates: start: 20100515, end: 20100516
  9. PREDNISONE [Suspect]
     Indication: ACUTE LYMPHOCYTIC LEUKAEMIA
     Dosage: 40 MG;BID;PO
     Route: 048
     Dates: start: 20100515, end: 20100526

REACTIONS (6)
  - ANXIETY [None]
  - CEREBRAL HAEMORRHAGE [None]
  - FALL [None]
  - GRAND MAL CONVULSION [None]
  - HEAD INJURY [None]
  - INTRACRANIAL VENOUS SINUS THROMBOSIS [None]
